FAERS Safety Report 5689633-2 (Version None)
Quarter: 2008Q1

REPORT INFORMATION
  Report Type: 
  Country: None (occurrence: None)
  Receive Date: 20080331
  Receipt Date: 20080328
  Transmission Date: 20080703
  Serious: Yes (Death)
  Sender: FDA-Public Use
  Company Number: BR-BOEHRINGER INGELHEIM GMBH, GERMANY-2008-BP-04756BR

PATIENT
  Age: 60 Year
  Sex: Female

DRUGS (6)
  1. SPIRIVA [Suspect]
     Indication: CHRONIC OBSTRUCTIVE PULMONARY DISEASE
     Route: 055
     Dates: start: 20060921
  2. PRELONE [Concomitant]
  3. FORASEQ [Concomitant]
  4. FRONTAL [Concomitant]
  5. TRIPTANOL [Concomitant]
  6. FENPROPOREX [Concomitant]

REACTIONS (1)
  - CEREBRAL HAEMORRHAGE [None]
